FAERS Safety Report 6370705-4 (Version None)
Quarter: 2009Q3

REPORT INFORMATION
  Report Type: 
  Country: None (occurrence: None)
  Receive Date: 20090923
  Receipt Date: 20070627
  Transmission Date: 20100115
  Serious: Yes (Other)
  Sender: FDA-Public Use
  Company Number: US-ASTRAZENECA-2006UW25129

PATIENT
  Sex: Female
  Weight: 128.8 kg

DRUGS (34)
  1. SEROQUEL [Suspect]
     Indication: ANXIETY
     Dosage: 100-1000 MG
     Route: 048
     Dates: start: 20010614
  2. SEROQUEL [Suspect]
     Indication: DEPRESSION
     Dosage: 100-1000 MG
     Route: 048
     Dates: start: 20010614
  3. SEROQUEL [Suspect]
     Indication: BIPOLAR DISORDER
     Dosage: 100-1000 MG
     Route: 048
     Dates: start: 20010614
  4. CLOZARIL [Concomitant]
     Dates: start: 19920101, end: 20060101
  5. DEPAKOTE [Concomitant]
  6. KLONOPIN [Concomitant]
  7. PROTONIX [Concomitant]
  8. DILAUDID [Concomitant]
  9. PROMETHAZINE HCL [Concomitant]
  10. CLOACE [Concomitant]
  11. LORTAB [Concomitant]
  12. DEMEROL [Concomitant]
  13. BUPRENEX [Concomitant]
  14. ATIVAN [Concomitant]
  15. SYNTHROID [Concomitant]
  16. VYTORIN [Concomitant]
  17. PREVACID [Concomitant]
  18. MILK OF MAGNESIA TAB [Concomitant]
  19. TIGAN [Concomitant]
  20. ZOLOFT [Concomitant]
  21. DIFLUCAN [Concomitant]
  22. KAOPECTATE [Concomitant]
  23. AMBIEN [Concomitant]
  24. GEODON [Concomitant]
  25. ZYRTEC [Concomitant]
  26. ZYPREXA [Concomitant]
  27. LUNESTA [Concomitant]
  28. NABUMETONE [Concomitant]
  29. ESKALITH [Concomitant]
  30. LYRICA [Concomitant]
  31. PREDNISONE [Concomitant]
  32. FLORINEF [Concomitant]
  33. RESTORIL [Concomitant]
  34. DESYREL [Concomitant]

REACTIONS (2)
  - HYPERGLYCAEMIA [None]
  - TARDIVE DYSKINESIA [None]
